FAERS Safety Report 7008458-9 (Version None)
Quarter: 2010Q3

REPORT INFORMATION
  Report Type: 
  Country: None (occurrence: None)
  Receive Date: 20100922
  Receipt Date: 20100915
  Transmission Date: 20110219
  Serious: Yes (Hospitalization)
  Sender: FDA-Public Use
  Company Number: US-B.I. PHARMACEUTICALS,INC./RIDGEFIELD-2010-BP-10453BP

PATIENT
  Sex: Male

DRUGS (5)
  1. FLOMAX [Suspect]
     Indication: NOCTURIA
     Dosage: 0.4 MG
     Route: 048
     Dates: start: 20080101
  2. HYDROCODONE [Concomitant]
     Indication: ARTHRALGIA
     Route: 048
     Dates: start: 20050101
  3. LISINOPRIL [Concomitant]
     Indication: HYPERTENSION
     Dosage: 0.5 MG
     Route: 048
     Dates: start: 20050101
  4. CLONAZEPAM [Concomitant]
     Indication: STRESS
     Dosage: 3 MG
     Route: 048
     Dates: start: 20060101
  5. SEROQUEL [Concomitant]
     Indication: BIPOLAR DISORDER
     Route: 048
     Dates: start: 20070101

REACTIONS (4)
  - ARTHRALGIA [None]
  - ARTHROPATHY [None]
  - EAR PAIN [None]
  - INFECTION [None]
